FAERS Safety Report 22620963 (Version 1)
Quarter: 2023Q2

REPORT INFORMATION
  Report Type: Spontaneous
  Country: US (occurrence: None)
  Receive Date: 20230616
  Receipt Date: 20230616
  Transmission Date: 20230722
  Serious: No
  Sender: FDA-Public Use
  Company Number: None

PATIENT
  Age: 56 Year
  Sex: Male
  Weight: 86.18 kg

DRUGS (1)
  1. ACTEMRA [Suspect]
     Active Substance: TOCILIZUMAB
     Indication: Rheumatoid arthritis
     Dosage: INJECT 160MG SUBCUTANEOUSLY ONCE A WEEK AS DIRECTED  ??THERAPY STOP: ON HOLD
     Route: 058
     Dates: start: 202303

REACTIONS (1)
  - Nasopharyngitis [None]
